FAERS Safety Report 19819405 (Version 2)
Quarter: 2021Q3

REPORT INFORMATION
  Report Type: Spontaneous
  Country: US (occurrence: US)
  Receive Date: 20210913
  Receipt Date: 20210921
  Transmission Date: 20211014
  Serious: No
  Sender: FDA-Public Use
  Company Number: US-LUPIN PHARMACEUTICALS INC.-2021-16999

PATIENT
  Sex: Female

DRUGS (1)
  1. ALBUTEROL SULFATE INHALATION AEROSOL, 90 MCG/ACTUATION [Suspect]
     Active Substance: ALBUTEROL SULFATE
     Indication: ASTHMA
     Dosage: 2 DOSAGE FORM, BID (TWO PUFFS TWICE A DAY)
     Dates: start: 20210816

REACTIONS (4)
  - Wrong technique in product usage process [Unknown]
  - Product communication issue [Unknown]
  - Drug dose omission by device [Unknown]
  - No adverse event [Unknown]
